FAERS Safety Report 6879771-0 (Version None)
Quarter: 2010Q3

REPORT INFORMATION
  Report Type: 
  Country: None (occurrence: None)
  Receive Date: 20100728
  Receipt Date: 20100611
  Transmission Date: 20110219
  Serious: No
  Sender: FDA-Public Use
  Company Number: US-MYLANLABS-2010S1008536

PATIENT
  Sex: Female

DRUGS (6)
  1. MIRTAZAPINE [Suspect]
     Indication: ANXIETY
     Dates: start: 20090101
  2. MIRTAZAPINE [Suspect]
     Indication: DEPRESSION
     Dates: start: 20090101
  3. MIRTAZAPINE [Suspect]
     Dates: start: 20100301, end: 20100101
  4. MIRTAZAPINE [Suspect]
     Dates: start: 20100301, end: 20100101
  5. MIRTAZAPINE [Suspect]
     Dates: start: 20100101, end: 20100401
  6. MIRTAZAPINE [Suspect]
     Dates: start: 20100101, end: 20100401

REACTIONS (4)
  - ANXIETY [None]
  - DRUG EFFECT DECREASED [None]
  - FEELING ABNORMAL [None]
  - INSOMNIA [None]
